FAERS Safety Report 8284939 (Version 19)
Quarter: 2013Q3

REPORT INFORMATION
  Report Type: Spontaneous
  Country: US (occurrence: US)
  Receive Date: 20111212
  Receipt Date: 20130823
  Transmission Date: 20140515
  Serious: Yes (Disabling, Other)
  Sender: FDA-Public Use
  Company Number: PHEH2011US011029

PATIENT
  Age: 48 Year
  Sex: Male

DRUGS (12)
  1. AREDIA [Suspect]
     Indication: NEOPLASM MALIGNANT
     Dosage: 90 MG, QMO
     Dates: start: 19981125, end: 200810
  2. AREDIA [Suspect]
     Indication: PLASMA CELL MYELOMA
  3. ZOMETA [Suspect]
     Indication: PLASMA CELL MYELOMA
  4. SYNTHROID [Concomitant]
  5. FLONASE [Concomitant]
  6. ZOLOFT [Concomitant]
  7. THALIDOMIDE [Concomitant]
  8. WELLBUTRIN SR [Concomitant]
     Dosage: 200 MG, BID
  9. OMEPRAZOLE [Concomitant]
     Dosage: 20 MG, QD
  10. ASPIRIN ^BAYER^ [Concomitant]
     Dosage: 81 MG, QD
  11. LAMICTAL ^BURROUGHS WELLCOME^ [Concomitant]
     Dosage: 50 MG, BID
  12. GABAPENTIN [Concomitant]
     Dosage: 300 MG, TID

REACTIONS (96)
  - Osteonecrosis of jaw [Unknown]
  - Exposed bone in jaw [Unknown]
  - Pain [Unknown]
  - Discomfort [Unknown]
  - Deformity [Unknown]
  - Mastication disorder [Unknown]
  - Emotional distress [Unknown]
  - Anxiety [Unknown]
  - Life expectancy shortened [Unknown]
  - Anhedonia [Unknown]
  - Injury [Unknown]
  - Osteomyelitis [Unknown]
  - Periodontal disease [Unknown]
  - Kyphosis [Unknown]
  - Compression fracture [Unknown]
  - Vision blurred [Unknown]
  - Hyperlipidaemia [Unknown]
  - Vitamin D deficiency [Unknown]
  - Type 2 diabetes mellitus [Unknown]
  - Diabetic neuropathy [Unknown]
  - Osteoarthritis [Unknown]
  - Nocturia [Unknown]
  - Polyuria [Unknown]
  - Lactose intolerance [Unknown]
  - Arteriosclerosis coronary artery [Unknown]
  - Benign neoplasm of adrenal gland [Unknown]
  - Osteolysis [Unknown]
  - Subcutaneous abscess [Unknown]
  - Sinus disorder [Unknown]
  - Osteopenia [Unknown]
  - Hypertension [Unknown]
  - Haemophilia [Unknown]
  - Gastrooesophageal reflux disease [Unknown]
  - Skin papilloma [Unknown]
  - Proteinuria [Unknown]
  - Depression [Unknown]
  - Impaired gastric emptying [Unknown]
  - Chest pain [Unknown]
  - Dyspnoea [Unknown]
  - Musculoskeletal pain [Unknown]
  - Mobility decreased [Unknown]
  - Interstitial lung disease [Unknown]
  - Scoliosis [Unknown]
  - Tooth fracture [Unknown]
  - Dental caries [Unknown]
  - Haemorrhage [Unknown]
  - Soft tissue inflammation [Unknown]
  - Obesity [Unknown]
  - Loss of libido [Unknown]
  - Erectile dysfunction [Unknown]
  - Prostatomegaly [Unknown]
  - Umbilical hernia [Unknown]
  - Osteoporosis [Unknown]
  - Abscess jaw [Unknown]
  - Restless legs syndrome [Unknown]
  - Pruritus generalised [Unknown]
  - Immunodeficiency [Unknown]
  - Thyroid disorder [Unknown]
  - Skin exfoliation [Unknown]
  - Cerumen impaction [Recovering/Resolving]
  - Leukaemia [Unknown]
  - Second primary malignancy [Unknown]
  - Device related infection [Unknown]
  - Atelectasis [Unknown]
  - Prostatic calcification [Unknown]
  - Neoplasm progression [Unknown]
  - Tooth disorder [Unknown]
  - Spinal deformity [Unknown]
  - Tooth infection [Unknown]
  - Fall [Unknown]
  - Pathological fracture [Unknown]
  - Spinal fracture [Unknown]
  - Bone lesion [Unknown]
  - Exostosis [Unknown]
  - Asthenia [Unknown]
  - Hypolipidaemia [Unknown]
  - Arthralgia [Unknown]
  - Nausea [Unknown]
  - Back pain [Unknown]
  - Fatigue [Unknown]
  - Dry skin [Unknown]
  - Constipation [Unknown]
  - Paraesthesia [Unknown]
  - Hypoaesthesia [Unknown]
  - Dyspepsia [Unknown]
  - Pyrexia [Unknown]
  - Headache [Unknown]
  - Ear pain [Unknown]
  - Muscle spasms [Unknown]
  - Abdominal discomfort [Unknown]
  - Thrombocytopenia [Unknown]
  - Astigmatism [Unknown]
  - Myopia [Unknown]
  - Alopecia [Unknown]
  - Bone pain [Unknown]
  - Pain in extremity [Unknown]
